FAERS Safety Report 17754876 (Version 2)
Quarter: 2020Q2

REPORT INFORMATION
  Report Type: Spontaneous
  Country: BE (occurrence: BE)
  Receive Date: 20200507
  Receipt Date: 20200527
  Transmission Date: 20200714
  Serious: Yes (Death, Other)
  Sender: FDA-Public Use
  Company Number: BE-SA-2020SA115641

PATIENT
  Age: 83 Year
  Sex: Male

DRUGS (41)
  1. CEFUROXIME. [Concomitant]
     Active Substance: CEFUROXIME
     Dosage: 1 DF, TID
     Dates: start: 20200426, end: 20200429
  2. PERINDOPRIL [Concomitant]
     Active Substance: PERINDOPRIL
     Indication: HYPERTENSION
     Dosage: 4 MG, QD
     Dates: start: 20200427, end: 20200429
  3. BASAGLAR [Concomitant]
     Active Substance: INSULIN GLARGINE
     Indication: DIABETES MELLITUS
     Dosage: 22 U, QD
     Route: 058
     Dates: start: 20200426, end: 20200428
  4. BASAGLAR [Concomitant]
     Active Substance: INSULIN GLARGINE
     Dosage: 18 U, BID
     Route: 058
     Dates: start: 20200429, end: 20200430
  5. ASAFLOW [Concomitant]
     Active Substance: ASPIRIN
     Dosage: 1 DF
     Route: 048
  6. SILDENAFIL SANDOZ [Concomitant]
     Active Substance: SILDENAFIL CITRATE
     Dosage: 0.5 DF
     Route: 048
  7. LANTUS [Concomitant]
     Active Substance: INSULIN GLARGINE
     Dosage: 22 IU
  8. HYDROXYCHLOROQUINE SULFATE. [Suspect]
     Active Substance: HYDROXYCHLOROQUINE SULFATE
     Indication: COVID-19 PNEUMONIA
     Dosage: 2 DF, BID
     Route: 048
     Dates: start: 20200427, end: 20200427
  9. HYDROXYCHLOROQUINE SULFATE. [Suspect]
     Active Substance: HYDROXYCHLOROQUINE SULFATE
     Indication: PRODUCT USE IN UNAPPROVED INDICATION
     Dosage: 1 DF, BID
     Route: 048
     Dates: start: 20200428, end: 20200429
  10. CLEXANE [Concomitant]
     Active Substance: ENOXAPARIN SODIUM
     Indication: ANTICOAGULANT THERAPY
     Dosage: 60 MG, BID
     Route: 058
     Dates: start: 20200426
  11. NOVORAPID [Concomitant]
     Active Substance: INSULIN ASPART
     Indication: DIABETES MELLITUS
     Dosage: UNK
     Route: 058
     Dates: start: 20200426
  12. MORPHINE HYDROCHLORIDE [Concomitant]
     Active Substance: MORPHINE HYDROCHLORIDE
     Indication: SEDATION
     Dosage: 2 MG, Q4H
     Route: 040
     Dates: start: 20200429
  13. SIMVASTATINE [Concomitant]
     Active Substance: SIMVASTATIN
     Indication: HYPERLIPIDAEMIA
     Dosage: 1 DF
     Route: 048
     Dates: start: 20200426, end: 20200428
  14. CYMBALTA [Concomitant]
     Active Substance: DULOXETINE HYDROCHLORIDE
     Dosage: 1 DF
     Route: 048
  15. PLAQUENIL [Suspect]
     Active Substance: HYDROXYCHLOROQUINE SULFATE
     Indication: COVID-19 PNEUMONIA
     Dosage: 2 DF, BID
     Route: 048
     Dates: start: 20200427, end: 20200427
  16. AZITHROMYCIN ANHYDROUS. [Concomitant]
     Active Substance: AZITHROMYCIN ANHYDROUS
     Indication: COVID-19 PNEUMONIA
     Dosage: 250 MG, QD
     Route: 048
     Dates: start: 20200426, end: 20200501
  17. SODIUM CHLORIDE. [Concomitant]
     Active Substance: SODIUM CHLORIDE
     Indication: COVID-19 PNEUMONIA
     Dosage: UNK
     Route: 058
     Dates: start: 20200429, end: 20200430
  18. INDERAL [Concomitant]
     Active Substance: PROPRANOLOL HYDROCHLORIDE
     Indication: HYPERTENSION
     Dosage: 40 MG, QD
     Dates: start: 20200427
  19. DAFALGAN FORTE [Concomitant]
     Indication: PYREXIA
  20. DAFALGAN FORTE [Concomitant]
     Indication: INFLAMMATION
  21. PANTOMED [PANTOPRAZOLE SODIUM SESQUIHYDRATE] [Concomitant]
     Active Substance: PANTOPRAZOLE SODIUM
     Dosage: 1 DF, BID
     Route: 040
     Dates: start: 20200428
  22. MIDAZOLAM B BRAUN [Concomitant]
     Indication: INSOMNIA
     Dosage: 5 MG
     Route: 040
     Dates: start: 20200430, end: 20200430
  23. CIPROXIN [CIPROFLOXACIN HYDROCHLORIDE] [Concomitant]
     Active Substance: CIPROFLOXACIN HYDROCHLORIDE
     Indication: POLLAKIURIA
     Dosage: 2 DF, QD
  24. PANTOMED [PANTOPRAZOLE SODIUM SESQUIHYDRATE] [Concomitant]
     Active Substance: PANTOPRAZOLE SODIUM
     Indication: ANTACID THERAPY
     Dosage: 1 DF, QD
     Route: 048
     Dates: start: 20200426
  25. KEVZARA [Suspect]
     Active Substance: SARILUMAB
     Indication: COVID-19 PNEUMONIA
     Dosage: 400 MG
     Route: 042
     Dates: start: 20200429, end: 20200430
  26. SODIUM CHLORIDE. [Concomitant]
     Active Substance: SODIUM CHLORIDE
     Indication: SEDATION
     Dosage: 2 MG, Q4H
     Route: 040
     Dates: start: 20200429
  27. PARACETAMOL B BRAUN [Concomitant]
     Active Substance: ACETAMINOPHEN
     Indication: PYREXIA
     Dosage: 3 DF
     Route: 041
     Dates: start: 20200428
  28. SODIUM CHLORIDE. [Concomitant]
     Active Substance: SODIUM CHLORIDE
     Indication: INSOMNIA
     Dosage: UNK
     Route: 040
     Dates: start: 20200430, end: 20200430
  29. TAMSULOSIN [Concomitant]
     Active Substance: TAMSULOSIN
     Indication: BENIGN PROSTATIC HYPERPLASIA
     Dosage: 1 DF, QD
     Route: 048
     Dates: start: 20200426
  30. COVERSYL [PERINDOPRIL ERBUMINE] [Concomitant]
     Active Substance: PERINDOPRIL ERBUMINE
     Dosage: 1 DF
     Route: 048
  31. CONTRAMAL [Concomitant]
     Active Substance: TRAMADOL HYDROCHLORIDE
     Dosage: 1 DF
     Route: 048
  32. ZOCOR [Concomitant]
     Active Substance: SIMVASTATIN
     Dosage: 1 DF
     Route: 048
  33. CLOPIDOGREL SANDOZ [CLOPIDOGREL] [Concomitant]
     Indication: ANTICOAGULANT THERAPY
     Dosage: 75 MG
  34. HALDOL [Concomitant]
     Active Substance: HALOPERIDOL
     Indication: AGITATION
     Dosage: 5 GTT DROPS, QD
     Route: 048
     Dates: start: 20200427
  35. REMERGON [Concomitant]
     Active Substance: MIRTAZAPINE
     Indication: DEPRESSION
     Dosage: 1 DF, QD
     Route: 048
     Dates: start: 20200426, end: 20200428
  36. KEVZARA [Suspect]
     Active Substance: SARILUMAB
     Indication: INTERLEUKIN LEVEL INCREASED
  37. PLAQUENIL [Suspect]
     Active Substance: HYDROXYCHLOROQUINE SULFATE
     Indication: PRODUCT USE IN UNAPPROVED INDICATION
     Dosage: 1 DF, BID
     Route: 048
     Dates: start: 20200428, end: 20200428
  38. PLAQUENIL [Suspect]
     Active Substance: HYDROXYCHLOROQUINE SULFATE
     Dosage: 1 DF, BID
     Route: 048
     Dates: start: 20200429, end: 20200501
  39. SODIUM CHLORIDE. [Concomitant]
     Active Substance: SODIUM CHLORIDE
     Indication: INTERLEUKIN LEVEL INCREASED
  40. DAFALGAN FORTE [Concomitant]
     Indication: PAIN
     Dosage: UNK UNK, Q6H
     Route: 048
     Dates: start: 20200426
  41. MIRTAZAPINE. [Concomitant]
     Active Substance: MIRTAZAPINE
     Dosage: 15 MG

REACTIONS (5)
  - Off label use [Unknown]
  - Condition aggravated [Fatal]
  - Wrong technique in product usage process [Unknown]
  - Product use issue [Unknown]
  - Respiratory failure [Fatal]

NARRATIVE: CASE EVENT DATE: 20200429
